FAERS Safety Report 9251149 (Version 1)
Quarter: 2013Q1

REPORT INFORMATION
  Report Type: Spontaneous
  Country: US (occurrence: None)
  Receive Date: 20130305
  Receipt Date: 20130305
  Transmission Date: 20140127
  Serious: Yes (Other)
  Sender: FDA-Public Use
  Company Number: 163-21880-12082294

PATIENT
  Age: 90 Year
  Sex: Female
  Weight: 84.7 kg

DRUGS (4)
  1. REVLIMID (LENALIDOMIDE) (CAPSULES) [Suspect]
     Indication: MYELODYSPLASTIC SYNDROME
     Dosage: 1 IN 1 D
     Route: 048
     Dates: start: 20110602
  2. ATENOLOL (ATENOLOL) [Suspect]
  3. LEVOTHYROXINE (LEVOTHYROXINE) [Suspect]
  4. NAPROXEN (NAPROXEN) [Suspect]

REACTIONS (1)
  - Pancytopenia [None]
